FAERS Safety Report 18187147 (Version 1)
Quarter: 2020Q3

REPORT INFORMATION
  Report Type: Spontaneous
  Country: US (occurrence: US)
  Receive Date: 20200824
  Receipt Date: 20200824
  Transmission Date: 20201103
  Serious: Yes (Other)
  Sender: FDA-Public Use
  Company Number: US-PFIZER INC-2020322302

PATIENT
  Age: 47 Year
  Sex: Male

DRUGS (8)
  1. FILGRASTIM [Suspect]
     Active Substance: FILGRASTIM
     Indication: HEAVY CHAIN DISEASE
     Dosage: UNK
  2. DEXAMETHASONE. [Concomitant]
     Active Substance: DEXAMETHASONE
     Indication: HEAVY CHAIN DISEASE
     Dosage: UNK, CYCLIC
  3. BORTEZOMIB. [Concomitant]
     Active Substance: BORTEZOMIB
     Indication: AMYLOIDOSIS
  4. DEXAMETHASONE. [Concomitant]
     Active Substance: DEXAMETHASONE
     Indication: AMYLOIDOSIS
  5. LENALIDOMIDE [Concomitant]
     Active Substance: LENALIDOMIDE
     Indication: HEAVY CHAIN DISEASE
     Dosage: UNK, CYCLIC
  6. FILGRASTIM [Suspect]
     Active Substance: FILGRASTIM
     Indication: AMYLOIDOSIS
  7. LENALIDOMIDE [Concomitant]
     Active Substance: LENALIDOMIDE
     Indication: AMYLOIDOSIS
  8. BORTEZOMIB. [Concomitant]
     Active Substance: BORTEZOMIB
     Indication: HEAVY CHAIN DISEASE
     Dosage: UNK UNK, CYCLIC

REACTIONS (3)
  - Product use in unapproved indication [Unknown]
  - Splenic rupture [Recovered/Resolved]
  - Off label use [Unknown]
